FAERS Safety Report 9305569 (Version 3)
Quarter: 2013Q2

REPORT INFORMATION
  Report Type: Report from Study
  Country: CA (occurrence: CA)
  Receive Date: 20130523
  Receipt Date: 20130617
  Transmission Date: 20140414
  Serious: Yes (Death, Hospitalization)
  Sender: FDA-Public Use
  Company Number: CA-BAYER-2013-054462

PATIENT
  Age: 45 Year
  Sex: Male

DRUGS (2)
  1. STIVARGA [Suspect]
     Indication: COLORECTAL CANCER
     Dosage: 120 MG, QD
     Route: 048
     Dates: start: 20130425
  2. STIVARGA [Suspect]
     Indication: COLORECTAL CANCER
     Dosage: 160 MG, QD
     Route: 048
     Dates: end: 20130508

REACTIONS (11)
  - Vomiting [None]
  - Intestinal obstruction [None]
  - Diarrhoea [None]
  - Faeces discoloured [None]
  - Diarrhoea [None]
  - Chromaturia [None]
  - Dry skin [None]
  - Vomiting [None]
  - Drug dose omission [None]
  - Coma [Fatal]
  - Death [Fatal]
